FAERS Safety Report 4893654-7 (Version None)
Quarter: 2005Q4

REPORT INFORMATION
  Report Type: 
  Country: None (occurrence: None)
  Receive Date: 20051223
  Receipt Date: 20051006
  Transmission Date: 20060501
  Serious: No
  Sender: FDA-Public Use
  Company Number: 2005PV002875

PATIENT
  Age: 64 Year
  Sex: Female
  Weight: 107.5025 kg

DRUGS (6)
  1. SYMLIN [Suspect]
     Indication: DIABETES MELLITUS NON-INSULIN-DEPENDENT
     Dosage: TID;SC ; 60 MCG;TID;SC
     Route: 058
     Dates: start: 20050921, end: 20051005
  2. SYMLIN [Suspect]
     Indication: DIABETES MELLITUS NON-INSULIN-DEPENDENT
     Dosage: TID;SC ; 60 MCG;TID;SC
     Route: 058
     Dates: start: 20051006
  3. METFORMIN HYDROCHLORIDE [Concomitant]
  4. PRANDIN [Concomitant]
  5. ASPIRIN [Concomitant]
  6. BYETTA [Concomitant]

REACTIONS (6)
  - BLOOD GLUCOSE ABNORMAL [None]
  - DECREASED APPETITE [None]
  - EARLY SATIETY [None]
  - INJECTION SITE BRUISING [None]
  - INJECTION SITE ERYTHEMA [None]
  - WEIGHT DECREASED [None]
